FAERS Safety Report 20380999 (Version 5)
Quarter: 2022Q4

REPORT INFORMATION
  Report Type: Report from Study
  Country: RU (occurrence: None)
  Receive Date: 20220127
  Receipt Date: 20221029
  Transmission Date: 20230113
  Serious: Yes (Other)
  Sender: FDA-Public Use
  Company Number: RU-ROCHE-3006847

PATIENT
  Age: 59 Year
  Sex: Female
  Weight: 87.1 kg

DRUGS (33)
  1. ATEZOLIZUMAB [Suspect]
     Active Substance: ATEZOLIZUMAB
     Indication: Bile duct cancer
     Dosage: START DATE OF MOST RECENT DOSE OF STUDY DRUG PRIOR TO AE AND SAE IS 03/NOV/2021.
     Route: 041
     Dates: start: 20210630
  2. BEVACIZUMAB [Suspect]
     Active Substance: BEVACIZUMAB
     Indication: Bile duct cancer
     Dosage: START DATE OF MOST RECENT DOSE OF STUDY DRUG PRIOR TO AE AND SAE IS 03/NOV/2021.
     Route: 042
     Dates: start: 20210630
  3. CISPLATIN [Suspect]
     Active Substance: CISPLATIN
     Indication: Bile duct cancer
     Dosage: MOST RECENT DOSE PRIOR TO AE AND SAE IS 38.2 MG ON 09/NOV/2021.
     Route: 042
     Dates: start: 20210630
  4. GEMCITABINE [Suspect]
     Active Substance: GEMCITABINE
     Indication: Bile duct cancer
     Dosage: DOSE LAST STUDY DRUG ADMIN PRIOR AE AND SAE IS 1528 MG
     Route: 042
     Dates: start: 20210630
  5. BISOPROLOL [Concomitant]
     Active Substance: BISOPROLOL
     Indication: Hypertension
     Dates: start: 2016
  6. ROSUVASTATIN [Concomitant]
     Active Substance: ROSUVASTATIN
     Indication: Hypertension
     Dates: start: 2016
  7. AMITRIPTYLINE [Concomitant]
     Active Substance: AMITRIPTYLINE
     Indication: Depressed mood
     Dates: start: 202106
  8. METFORMIN [Concomitant]
     Active Substance: METFORMIN HYDROCHLORIDE
     Indication: Type 2 diabetes mellitus
     Dates: start: 201906
  9. ALOGLIPTIN [Concomitant]
     Active Substance: ALOGLIPTIN
     Indication: Type 2 diabetes mellitus
     Dates: start: 20210723
  10. INOSINE [Concomitant]
     Active Substance: INOSINE
     Indication: Hypertension
     Dates: start: 20210830
  11. APIXABAN [Concomitant]
     Active Substance: APIXABAN
     Indication: Superficial vein thrombosis
     Dates: start: 20210930
  12. PALONOSETRON [Concomitant]
     Active Substance: PALONOSETRON
     Dates: start: 20211012, end: 20211012
  13. PALONOSETRON [Concomitant]
     Active Substance: PALONOSETRON
     Dates: start: 20211018, end: 20211018
  14. PALONOSETRON [Concomitant]
     Active Substance: PALONOSETRON
     Dates: start: 20211103, end: 20211103
  15. PALONOSETRON [Concomitant]
     Active Substance: PALONOSETRON
     Dates: start: 20211109, end: 20211109
  16. DEXAMETHASONE [Concomitant]
     Active Substance: DEXAMETHASONE
     Dates: start: 20211012, end: 20211012
  17. DEXAMETHASONE [Concomitant]
     Active Substance: DEXAMETHASONE
     Dates: start: 20211018, end: 20211018
  18. DEXAMETHASONE [Concomitant]
     Active Substance: DEXAMETHASONE
     Dates: start: 20211103, end: 20211103
  19. DEXAMETHASONE [Concomitant]
     Active Substance: DEXAMETHASONE
     Dates: start: 20211109, end: 20211109
  20. FILGRASTIM [Concomitant]
     Active Substance: FILGRASTIM
     Indication: Febrile neutropenia
     Dates: start: 20211116, end: 20211116
  21. FILGRASTIM [Concomitant]
     Active Substance: FILGRASTIM
     Dates: start: 20211122, end: 20211122
  22. AFLIBERCEPT [Concomitant]
     Active Substance: AFLIBERCEPT
     Dates: start: 20210630, end: 20211223
  23. CIPROFLOXACIN [Concomitant]
     Active Substance: CIPROFLOXACIN
     Dates: start: 20211116, end: 20211121
  24. LOSARTAN [Concomitant]
     Active Substance: LOSARTAN
     Indication: Blood pressure increased
     Dates: start: 20211122
  25. EPOETIN BETA [Concomitant]
     Active Substance: ERYTHROPOIETIN
     Dates: start: 20211123
  26. EPOETIN BETA [Concomitant]
     Active Substance: ERYTHROPOIETIN
     Dates: start: 20211125, end: 20211125
  27. EPOETIN BETA [Concomitant]
     Active Substance: ERYTHROPOIETIN
     Dates: start: 20211127, end: 20211127
  28. EPOETIN BETA [Concomitant]
     Active Substance: ERYTHROPOIETIN
     Dates: start: 20211130, end: 20211130
  29. AMLODIPINE BESYLATE [Concomitant]
     Active Substance: AMLODIPINE BESYLATE
     Indication: Blood pressure increased
     Dates: start: 20211120
  30. DIPYRIDAMOLE [Concomitant]
     Active Substance: DIPYRIDAMOLE
     Indication: Prophylaxis
     Dates: start: 20211123, end: 20211217
  31. DICLOFENAC [Concomitant]
     Active Substance: DICLOFENAC
     Indication: Pyrexia
     Dates: start: 20211123, end: 20211123
  32. AMOXICILLIN\CLAVULANATE POTASSIUM [Concomitant]
     Active Substance: AMOXICILLIN\CLAVULANATE POTASSIUM
     Indication: Pyrexia
     Dates: start: 20211126, end: 20211202
  33. DROTAVERINE [Concomitant]
     Active Substance: DROTAVERINE
     Indication: Abdominal pain
     Dates: start: 20211203

REACTIONS (1)
  - Thrombocytopenia [Recovered/Resolved]

NARRATIVE: CASE EVENT DATE: 20211108
